FAERS Safety Report 5066621-0 (Version None)
Quarter: 2006Q3

REPORT INFORMATION
  Report Type: 
  Country: None (occurrence: None)
  Receive Date: 20060712
  Receipt Date: 20060424
  Transmission Date: 20061208
  Serious: No
  Sender: FDA-Public Use
  Company Number: A03200602645

PATIENT
  Age: 72 Year
  Sex: Male

DRUGS (3)
  1. UROXATRAL [Suspect]
     Dosage: 10 MG OD - ORAL
     Route: 048
     Dates: start: 20060327
  2. AMBROTOSE [Suspect]
     Dates: start: 20060101
  3. AMBROTOSE [Concomitant]

REACTIONS (2)
  - PROSTATIC SPECIFIC ANTIGEN DECREASED [None]
  - THERAPEUTIC RESPONSE UNEXPECTED [None]
